FAERS Safety Report 19176469 (Version 1)
Quarter: 2021Q2

REPORT INFORMATION
  Report Type: Spontaneous
  Country: US (occurrence: US)
  Receive Date: 20210423
  Receipt Date: 20210423
  Transmission Date: 20210717
  Serious: No
  Sender: FDA-Public Use
  Company Number: US-ASTRAZENECA-2021A240103

PATIENT
  Sex: Female
  Weight: 79.8 kg

DRUGS (1)
  1. PULMICORT FLEXHALER [Suspect]
     Active Substance: BUDESONIDE
     Indication: DYSPNOEA
     Route: 055

REACTIONS (5)
  - Dyspnoea [Unknown]
  - Product use complaint [Unknown]
  - Drug dose omission by device [Unknown]
  - Drug delivery system malfunction [Unknown]
  - Product container issue [Unknown]
